FAERS Safety Report 15012525 (Version 1)
Quarter: 2018Q2

REPORT INFORMATION
  Report Type: Spontaneous
  Country: US (occurrence: US)
  Receive Date: 20180530
  Receipt Date: 20180530
  Transmission Date: 20180711
  Serious: Yes (Other)
  Sender: FDA-Public Use
  Company Number: None

PATIENT
  Age: 55 Year
  Sex: Female
  Weight: 72 kg

DRUGS (8)
  1. CALCIUM [Concomitant]
     Active Substance: CALCIUM
  2. BIOTIN [Concomitant]
     Active Substance: BIOTIN
  3. MAGNESIUM [Concomitant]
     Active Substance: MAGNESIUM
  4. SMZ/TMP DS 800 1-60 TAB ANN [Suspect]
     Active Substance: SULFAMETHOXAZOLE\TRIMETHOPRIM
     Indication: CYSTITIS
     Dosage: ?          QUANTITY:10 TABLET(S);?
     Route: 048
     Dates: start: 20180524, end: 20180527
  5. VITAMIN B COMPLEX [Concomitant]
     Active Substance: CYANOCOBALAMIN\DEXPANTHENOL\NIACINAMIDE\PYRIDOXINE HYDROCHLORIDE\RIBOFLAVIN 5^-PHOSPHATE SODIUM\THIAMINE HYDROCHLORIDE\VITAMIN B COMPLEX
  6. ZINC. [Concomitant]
     Active Substance: ZINC
  7. VITAMIN D3 [Concomitant]
     Active Substance: CHOLECALCIFEROL
  8. PROGRESSENCE OIL [Concomitant]

REACTIONS (10)
  - Myalgia [None]
  - Decreased appetite [None]
  - Renal pain [None]
  - Asthenia [None]
  - Arthralgia [None]
  - Renal disorder [None]
  - Chills [None]
  - Pyrexia [None]
  - Constipation [None]
  - Somnolence [None]

NARRATIVE: CASE EVENT DATE: 20180528
